FAERS Safety Report 8576026 (Version 2)
Quarter: 2012Q4

REPORT INFORMATION
  Report Type: 
  Country: US (occurrence: US)
  Receive Date: 20120523
  Receipt Date: 20120924
  Transmission Date: 20130627
  Serious: Yes (Hospitalization)
  Sender: FDA-Public Use
  Company Number: US-GLAXOSMITHKLINE-A0978417A

PATIENT
  Age: 50 Year
  Sex: Male

DRUGS (7)
  1. ADVAIR [Suspect]
     Indication: CHRONIC OBSTRUCTIVE PULMONARY DISEASE
     Dosage: 1PUFF Twice per day
     Route: 055
  2. METHADONE [Concomitant]
  3. OXYCODONE [Concomitant]
  4. LOSARTAN [Concomitant]
  5. CLONAZEPAM [Concomitant]
  6. LEXAPRO [Concomitant]
  7. CYCLOBENZAPRINE [Concomitant]

REACTIONS (7)
  - Renal failure acute [Recovered/Resolved]
  - Post procedural haemorrhage [Unknown]
  - Pancreatitis [Unknown]
  - Post procedural pneumonia [Unknown]
  - Hepatic failure [Unknown]
  - Gallbladder disorder [Unknown]
  - Pyrexia [Unknown]
